FAERS Safety Report 23232227 (Version 1)
Quarter: 2023Q4

REPORT INFORMATION
  Report Type: Spontaneous
  Country: CH (occurrence: CH)
  Receive Date: 20231127
  Receipt Date: 20231127
  Transmission Date: 20240109
  Serious: Yes (Hospitalization)
  Sender: FDA-Public Use
  Company Number: None

PATIENT
  Age: 72 Year
  Sex: Female

DRUGS (9)
  1. EMPAGLIFLOZIN\METFORMIN HYDROCHLORIDE [Suspect]
     Active Substance: EMPAGLIFLOZIN\METFORMIN HYDROCHLORIDE
     Indication: Type 2 diabetes mellitus
     Dosage: DATE D?INTRODUCTION EXACTE NON CONNUE, ENTRE 10.2022 ET 2023, EN TOUT CAS PR?SENT DEPUIS PLUSIEUR...
     Route: 048
     Dates: end: 20231005
  2. COVERAM [Suspect]
     Active Substance: AMLODIPINE\PERINDOPRIL
     Indication: Hypertension
     Dosage: P?RINDOPRIL COVERSUM? 5MG 1X/J PO D?J? PR?SENT EN 2018, STOP EN AVRIL 2022
     Route: 048
     Dates: start: 202204
  3. ASPIRIN [Concomitant]
     Active Substance: ASPIRIN
     Indication: Product used for unknown indication
     Dosage: DATE D?INTRODUCTION INCONNUE, MAIS D?J? PR?SENT EN 11.2018
  4. CRESTOR [Concomitant]
     Active Substance: ROSUVASTATIN CALCIUM
     Indication: Product used for unknown indication
     Dosage: DATE D?INTRODUCTION INCONNUE, MAIS D?J? PR?SENT EN 11.2018
  5. GLICLAZIDE [Concomitant]
     Active Substance: GLICLAZIDE
     Indication: Product used for unknown indication
     Dosage: DATE D?INTRODUCTION INCONNUE, MAIS D?J? PR?SENT EN 11.2018
     Dates: end: 20231005
  6. EUTHYROX [Concomitant]
     Active Substance: LEVOTHYROXINE SODIUM
     Indication: Product used for unknown indication
     Dosage: EN ALTERNANCE, DATE D?INTRODUCTION INCONNUE, MAIS D?J? PR?SENT EN 11.2018
  7. EUTHYROX [Concomitant]
     Active Substance: LEVOTHYROXINE SODIUM
     Dosage: EN ALTERNANCE, DATE D?INTRODUCTION INCONNUE, MAIS D?J? PR?SENT EN 11.2018
  8. VIMOVO [Concomitant]
     Active Substance: ESOMEPRAZOLE MAGNESIUM\NAPROXEN
     Indication: Product used for unknown indication
     Dosage: DATE D?INTRODUCTION INCONNUE ; AS NECESSARY
  9. CALCIUM\CHOLECALCIFEROL [Concomitant]
     Active Substance: CALCIUM\CHOLECALCIFEROL
     Indication: Product used for unknown indication
     Dosage: 1000MG/800UI, DATE D?INTRODUCTION INCONNUE, MAIS D?J? PR?SENT EN 03.2022

REACTIONS (5)
  - Abnormal loss of weight [Not Recovered/Not Resolved]
  - General physical health deterioration [Unknown]
  - Nausea [Recovering/Resolving]
  - Decreased appetite [Unknown]
  - Vomiting [Recovered/Resolved]

NARRATIVE: CASE EVENT DATE: 20220101
